FAERS Safety Report 13524397 (Version 1)
Quarter: 2017Q2

REPORT INFORMATION
  Report Type: Spontaneous
  Country: CN (occurrence: CN)
  Receive Date: 20170508
  Receipt Date: 20170508
  Transmission Date: 20170830
  Serious: Yes (Other)
  Sender: FDA-Public Use
  Company Number: CN-PFIZER INC-2017199399

PATIENT
  Age: 77 Year
  Sex: Female
  Weight: 65 kg

DRUGS (2)
  1. CITICOLINE SODIUM [Concomitant]
     Active Substance: CITICOLINE SODIUM
     Indication: NUTRITIONAL SUPPLEMENTATION
     Dosage: 0.5 G, 1X/DAY
     Route: 042
     Dates: start: 20170326, end: 20170330
  2. CEFOBID [Suspect]
     Active Substance: CEFOPERAZONE
     Indication: INFECTION
     Dosage: 2 G, 2X/DAY
     Route: 042
     Dates: start: 20170326, end: 20170326

REACTIONS (3)
  - Tremor [Recovering/Resolving]
  - Chills [Recovering/Resolving]
  - Pyrexia [Recovering/Resolving]

NARRATIVE: CASE EVENT DATE: 20170326
